FAERS Safety Report 12341590 (Version 1)
Quarter: 2016Q2

REPORT INFORMATION
  Report Type: Spontaneous
  Country: US (occurrence: US)
  Receive Date: 20160506
  Receipt Date: 20160506
  Transmission Date: 20160815
  Serious: No
  Sender: FDA-Public Use
  Company Number: US-ASTRAZENECA-2016SE34448

PATIENT
  Age: 23722 Day
  Sex: Female
  Weight: 45.4 kg

DRUGS (12)
  1. SYMBICORT [Suspect]
     Active Substance: BUDESONIDE\FORMOTEROL FUMARATE DIHYDRATE
     Indication: LUNG DISORDER
     Dosage: 160/4.5 MCG. 2 PUFFS 2 TIMES DAILY
     Route: 055
     Dates: start: 20160308
  2. SYMBICORT [Suspect]
     Active Substance: BUDESONIDE\FORMOTEROL FUMARATE DIHYDRATE
     Indication: ASTHMA
     Dosage: 160/4.5 MCG. 2 PUFFS 2 TIMES DAILY
     Route: 055
     Dates: start: 20160308
  3. GABAPENTIN. [Concomitant]
     Active Substance: GABAPENTIN
     Indication: PAIN
     Route: 048
  4. RANITIDINE. [Concomitant]
     Active Substance: RANITIDINE
     Indication: ANTACID THERAPY
     Route: 048
  5. SYMBICORT [Suspect]
     Active Substance: BUDESONIDE\FORMOTEROL FUMARATE DIHYDRATE
     Indication: CHRONIC OBSTRUCTIVE PULMONARY DISEASE
     Dosage: 160/4.5 MCG. 2 PUFFS 2 TIMES DAILY
     Route: 055
     Dates: start: 20160308
  6. SYMBICORT [Suspect]
     Active Substance: BUDESONIDE\FORMOTEROL FUMARATE DIHYDRATE
     Indication: EMPHYSEMA
     Dosage: 160/4.5 MCG. 2 PUFFS 2 TIMES DAILY
     Route: 055
     Dates: start: 20160308
  7. TRAZODONE [Concomitant]
     Active Substance: TRAZODONE HYDROCHLORIDE
     Route: 048
  8. IBUPROFEN. [Concomitant]
     Active Substance: IBUPROFEN
     Indication: ARTHRITIS
     Route: 048
  9. DIAZEPAM. [Concomitant]
     Active Substance: DIAZEPAM
  10. COMBIVENT [Concomitant]
     Active Substance: ALBUTEROL SULFATE\IPRATROPIUM BROMIDE
     Indication: CHRONIC OBSTRUCTIVE PULMONARY DISEASE
     Route: 055
  11. HYDROCODONE [Concomitant]
     Active Substance: HYDROCODONE
     Indication: PAIN
     Route: 048
  12. MONTELUKAST [Concomitant]
     Active Substance: MONTELUKAST SODIUM
     Indication: CHRONIC OBSTRUCTIVE PULMONARY DISEASE
     Route: 048

REACTIONS (4)
  - Product quality issue [Unknown]
  - Dyspnoea [Unknown]
  - Intentional product misuse [Unknown]
  - Drug dose omission [Not Recovered/Not Resolved]

NARRATIVE: CASE EVENT DATE: 20160325
